FAERS Safety Report 5479378-6 (Version None)
Quarter: 2007Q4

REPORT INFORMATION
  Report Type: 
  Country: None (occurrence: None)
  Receive Date: 20071008
  Receipt Date: 20070927
  Transmission Date: 20080405
  Serious: Yes (Hospitalization)
  Sender: FDA-Public Use
  Company Number: US-AMGEN-STX245348

PATIENT
  Sex: Male

DRUGS (3)
  1. ENBREL [Suspect]
     Indication: ANKYLOSING SPONDYLITIS
     Route: 058
     Dates: start: 20030201
  2. ENBREL [Suspect]
     Indication: REITER'S SYNDROME
  3. METHOTREXATE [Concomitant]
     Route: 048
     Dates: start: 19870101

REACTIONS (1)
  - UMBILICAL HERNIA [None]
